FAERS Safety Report 10023901 (Version 1)
Quarter: 2014Q1

REPORT INFORMATION
  Report Type: Spontaneous
  Country: US (occurrence: None)
  Receive Date: 20140319
  Receipt Date: 20140319
  Transmission Date: 20141002
  Serious: No
  Sender: FDA-Public Use
  Company Number: None

PATIENT
  Age: 40 Year
  Sex: Female
  Weight: 45.36 kg

DRUGS (7)
  1. LEVOTHYROXINE [Suspect]
     Indication: HYPOTHYROIDISM
     Dates: start: 20130321, end: 20130422
  2. CALCIUM [Concomitant]
  3. MAGNESIUM [Concomitant]
  4. VITAMIN C [Concomitant]
  5. POTASSIUM [Concomitant]
  6. VITAMIN B-6 [Concomitant]
  7. VITAMIN B-12 [Concomitant]

REACTIONS (12)
  - Swelling [None]
  - Joint swelling [None]
  - Local swelling [None]
  - Peripheral coldness [None]
  - Lethargy [None]
  - Fatigue [None]
  - Dementia [None]
  - Pulse volume decreased [None]
  - Drug ineffective [None]
  - Hypothermia [None]
  - Product quality issue [None]
  - Depressed mood [None]
